FAERS Safety Report 4727804-X (Version None)
Quarter: 2005Q3

REPORT INFORMATION
  Report Type: 
  Country: None (occurrence: None)
  Receive Date: 20050728
  Receipt Date: 20050527
  Transmission Date: 20060218
  Serious: Yes (Life-Threatening, Hospitalization, Disabling, Other)
  Sender: FDA-Public Use
  Company Number: DE-MERCK-0505DEU00194

PATIENT
  Age: 29 Year
  Sex: Male
  Weight: 112 kg

DRUGS (1)
  1. PROPECIA [Suspect]
     Indication: ALOPECIA
     Route: 048
     Dates: start: 19990101, end: 20050501

REACTIONS (10)
  - ACUTE MYELOID LEUKAEMIA [None]
  - BLOOD CREATININE INCREASED [None]
  - FEBRILE NEUTROPENIA [None]
  - GENERAL PHYSICAL HEALTH DETERIORATION [None]
  - RASH [None]
  - SPLENOMEGALY [None]
  - THROMBOCYTOPENIA [None]
  - TRANSFUSION REACTION [None]
  - VITREOUS HAEMORRHAGE [None]
  - WEIGHT DECREASED [None]
